FAERS Safety Report 4340168-9 (Version None)
Quarter: 2004Q1

REPORT INFORMATION
  Report Type: 
  Country: None (occurrence: None)
  Receive Date: 20040329
  Receipt Date: 20040203
  Transmission Date: 20041129
  Serious: No
  Sender: FDA-Public Use
  Company Number: 04P-163-0249325-00

PATIENT
  Age: 22 Year
  Sex: Female
  Weight: 100.6985 kg

DRUGS (10)
  1. HUMIRA [Suspect]
     Indication: RHEUMATOID ARTHRITIS
     Dosage: 40 MG, 1 IN 2 WK, INJECTION
     Dates: start: 20031208, end: 20040105
  2. PREDNISONE [Concomitant]
  3. TRAZODONE HCL [Concomitant]
  4. NAPROXEN SODIUM [Concomitant]
  5. FLUCONAZOLE [Concomitant]
  6. NITROFURANTOIN [Concomitant]
  7. CALCIUM CARBONATE [Concomitant]
  8. ACETAMINOPHEN [Concomitant]
  9. PRENATAL [Concomitant]
  10. VICODIN [Concomitant]

REACTIONS (3)
  - ABDOMINAL SYMPTOM [None]
  - INJECTION SITE ERYTHEMA [None]
  - INJECTION SITE RASH [None]
